FAERS Safety Report 9538959 (Version 1)
Quarter: 2013Q3

REPORT INFORMATION
  Report Type: Spontaneous
  Country: DK (occurrence: DK)
  Receive Date: 20130920
  Receipt Date: 20130920
  Transmission Date: 20140515
  Serious: Yes (Death, Other)
  Sender: FDA-Public Use
  Company Number: DK-ASTELLAS-2013EU007968

PATIENT
  Age: 77 Year
  Sex: Male

DRUGS (4)
  1. PROTOPIC [Suspect]
     Indication: PARANEOPLASTIC PEMPHIGUS
     Dosage: UNK
     Route: 061
  2. ALEMTUZUMAB [Suspect]
     Indication: CHRONIC LYMPHOCYTIC LEUKAEMIA
     Dosage: 30 MG, 3XWEEKLY
     Route: 058
  3. CORTICOSTEROID NOS [Concomitant]
     Indication: RASH
     Dosage: UNK
     Route: 065
  4. CELLCEPT                           /01275102/ [Concomitant]
     Dosage: 1500 MG, UNKNOWN/D
     Route: 065

REACTIONS (6)
  - Off label use [Unknown]
  - Death [Fatal]
  - Paraneoplastic pemphigus [Unknown]
  - Bacterial infection [Unknown]
  - Bacteraemia [Unknown]
  - General physical health deterioration [Unknown]
